FAERS Safety Report 5773344 (Version 6)
Quarter: 2016Q1

REPORT INFORMATION
  Report Type: Spontaneous
  Country: FR (occurrence: FR)
  Receive Date: 20050411
  Receipt Date: 20160223
  Transmission Date: 20160526
  Serious: Yes (Hospitalization, Other)
  Sender: FDA-Public Use
  Company Number: FR-BRISTOL-MYERS SQUIBB COMPANY-12918066

PATIENT
  Age: 12 Year
  Sex: Female
  Weight: 33 kg

DRUGS (7)
  1. TRIFLUCAN [Suspect]
     Active Substance: FLUCONAZOLE
     Indication: INFECTION
     Dosage: 200 MG, UNK
     Route: 048
     Dates: start: 20050126, end: 20050217
  2. AMIKACIN SULFATE. [Interacting]
     Active Substance: AMIKACIN SULFATE
     Indication: PRODUCT USED FOR UNKNOWN INDICATION
     Dosage: UNK
     Route: 042
     Dates: start: 20050204, end: 20050210
  3. RIFADINE [Suspect]
     Active Substance: RIFAMPIN
     Indication: PRODUCT USED FOR UNKNOWN INDICATION
     Dosage: 644 MG, UNK
     Route: 042
     Dates: start: 20050126, end: 20050210
  4. TAZOCILLINE [Suspect]
     Active Substance: PIPERACILLIN SODIUM\TAZOBACTAM SODIUM
     Indication: PRODUCT USED FOR UNKNOWN INDICATION
     Dosage: UNK
     Route: 042
     Dates: start: 20050204, end: 20050210
  5. RIFADINE [Suspect]
     Active Substance: RIFAMPIN
     Dosage: UNK
     Route: 048
  6. TRIFLUCAN [Suspect]
     Active Substance: FLUCONAZOLE
     Dosage: 322 UNK, UNK
     Route: 048
  7. VANCOCINE [Suspect]
     Active Substance: VANCOMYCIN
     Indication: INFECTION
     Dosage: UNK
     Route: 042
     Dates: start: 20050126, end: 20050217

REACTIONS (7)
  - Alanine aminotransferase increased [Recovering/Resolving]
  - Eosinophilia [Recovering/Resolving]
  - Neutropenia [Recovering/Resolving]
  - Leukopenia [Unknown]
  - Urticaria [Recovering/Resolving]
  - Blood alkaline phosphatase increased [Recovering/Resolving]
  - Drug reaction with eosinophilia and systemic symptoms [Recovered/Resolved]

NARRATIVE: CASE EVENT DATE: 20050210
